FAERS Safety Report 8185657-4 (Version None)
Quarter: 2012Q1

REPORT INFORMATION
  Report Type: 
  Country: None (occurrence: None)
  Receive Date: 20120305
  Receipt Date: 20120214
  Transmission Date: 20120608
  Serious: Yes (Other)
  Sender: FDA-Public Use
  Company Number: CHPA2012US002958

PATIENT
  Age: 50 Year
  Sex: Female

DRUGS (1)
  1. GAS-X EXTRA STRENGTH SOFTGELS [Suspect]
     Indication: FLATULENCE
     Dosage: 2 DF, UNK
     Route: 048
     Dates: start: 20120115, end: 20120101

REACTIONS (7)
  - FAECES DISCOLOURED [None]
  - MALAISE [None]
  - HYPERSENSITIVITY [None]
  - RASH [None]
  - ABDOMINAL PAIN UPPER [None]
  - NAUSEA [None]
  - PRURITUS GENERALISED [None]
